FAERS Safety Report 6349461-1 (Version None)
Quarter: 2009Q3

REPORT INFORMATION
  Report Type: 
  Country: None (occurrence: None)
  Receive Date: 20090911
  Receipt Date: 20090901
  Transmission Date: 20100115
  Serious: No
  Sender: FDA-Public Use
  Company Number: BR-ABBOTT-09P-020-0594800-00

PATIENT
  Age: 35 Year
  Sex: Female
  Weight: 91 kg

DRUGS (1)
  1. SIBUTRAMINE [Suspect]
     Indication: WEIGHT DECREASED
     Dosage: 1 CAPSULE
     Route: 048
     Dates: start: 20090825, end: 20090828

REACTIONS (11)
  - DISTURBANCE IN ATTENTION [None]
  - DRUG THERAPY [None]
  - ERYTHEMA [None]
  - FATIGUE [None]
  - GENERALISED OEDEMA [None]
  - HYPERHIDROSIS [None]
  - LACK OF SATIETY [None]
  - LYMPHADENITIS [None]
  - MALAISE [None]
  - TACHYCARDIA [None]
  - URTICARIA [None]
